FAERS Safety Report 18576492 (Version 2)
Quarter: 2020Q4

REPORT INFORMATION
  Report Type: Spontaneous
  Country: PT (occurrence: PT)
  Receive Date: 20201203
  Receipt Date: 20201208
  Transmission Date: 20210114
  Serious: No
  Sender: FDA-Public Use
  Company Number: PT-PFIZER INC-2020470347

PATIENT
  Age: 56 Year
  Sex: Female

DRUGS (10)
  1. TRAZODONE [Suspect]
     Active Substance: TRAZODONE HYDROCHLORIDE
     Dosage: UNK
  2. TRAZODONE [Suspect]
     Active Substance: TRAZODONE HYDROCHLORIDE
     Dosage: UNK
  3. LEVETIRACETAM. [Suspect]
     Active Substance: LEVETIRACETAM
     Dosage: UNK
  4. NEURALEX [Suspect]
     Active Substance: OMEGA-3 FATTY ACIDS\VITAMINS
     Dosage: UNK
  5. ESTRIOL [Suspect]
     Active Substance: ESTRIOL
     Dosage: UNK
  6. MAGNESIUM CITRATE/SODIUM PICOSULFATE [Suspect]
     Active Substance: MAGNESIUM CITRATE\SODIUM PICOSULFATE
     Dosage: UNK
  7. HYDROCHLOROTHIAZIDE. [Suspect]
     Active Substance: HYDROCHLOROTHIAZIDE
     Dosage: UNK
  8. PRAVASTATIN. [Suspect]
     Active Substance: PRAVASTATIN
     Dosage: UNK
  9. ENALAPRIL [Suspect]
     Active Substance: ENALAPRIL
     Dosage: UNK
  10. CALCIUM DOBESILATE [Suspect]
     Active Substance: CALCIUM DOBESILATE
     Dosage: UNK

REACTIONS (1)
  - No adverse event [Unknown]

NARRATIVE: CASE EVENT DATE: 20160223
